FAERS Safety Report 7908644-7 (Version None)
Quarter: 2011Q4

REPORT INFORMATION
  Report Type: 
  Country: None (occurrence: None)
  Receive Date: 20111111
  Receipt Date: 20111104
  Transmission Date: 20120403
  Serious: Yes (Hospitalization, Other)
  Sender: FDA-Public Use
  Company Number: PHHY2011VN097975

PATIENT
  Sex: Female
  Weight: 54 kg

DRUGS (8)
  1. OMEPRAZOLE [Concomitant]
     Dosage: 2 DF, DAILY
     Route: 048
  2. CELEBREX [Concomitant]
     Dosage: 2 DF, DAILY
     Route: 048
  3. OSTEOFLEX [Concomitant]
     Dosage: 2 DF, DAILY
     Route: 048
  4. BRIOCAL [Concomitant]
     Dosage: 1 DF, DAILY
     Route: 048
  5. METFORMIN HCL [Concomitant]
     Dosage: 2 DF, DAILY
     Route: 048
  6. VITAMIN D [Concomitant]
     Dosage: 1 DF, DAILY
     Route: 048
  7. INSULINE [Concomitant]
     Dosage: 10 IU, DAILY
     Route: 058
  8. ZOLEDRONOC ACID [Suspect]
     Indication: OSTEOPOROSIS
     Dosage: 5 MG,
     Route: 042
     Dates: start: 20111103

REACTIONS (5)
  - DISCOMFORT [None]
  - DYSPNOEA [None]
  - FATIGUE [None]
  - PYREXIA [None]
  - PAIN [None]
